FAERS Safety Report 25908622 (Version 1)
Quarter: 2025Q4

REPORT INFORMATION
  Report Type: Spontaneous
  Country: GB (occurrence: GB)
  Receive Date: 20251010
  Receipt Date: 20251010
  Transmission Date: 20260117
  Serious: Yes (Other)
  Sender: PRINSTON PHARMACEUTICAL
  Company Number: GB-PRINSTON PHARMACEUTICAL INC.-2025PRN00331

PATIENT
  Age: 46 Year
  Sex: Male

DRUGS (1)
  1. BISOPROLOL FUMARATE [Suspect]
     Active Substance: BISOPROLOL FUMARATE
     Indication: Hypertrophic cardiomyopathy
     Dosage: 2.5 MG, 1X/DAY (OD)

REACTIONS (2)
  - Atrioventricular block second degree [Unknown]
  - Cardiac arrest [Unknown]
